FAERS Safety Report 4604050-1 (Version None)
Quarter: 2005Q1

REPORT INFORMATION
  Report Type: 
  Country: None (occurrence: None)
  Receive Date: 20050308
  Receipt Date: 20050308
  Transmission Date: 20050727
  Serious: Yes (Life-Threatening)
  Sender: FDA-Public Use
  Company Number: None

PATIENT
  Age: 31 Year
  Sex: Male

DRUGS (2)
  1. STRATTERA [Suspect]
     Indication: INTENTIONAL MISUSE
     Dosage: ONCE ORAL
     Route: 048
     Dates: start: 20041128, end: 20041128
  2. NEXIUM [Concomitant]

REACTIONS (5)
  - GRAND MAL CONVULSION [None]
  - HYPERTENSION [None]
  - INTENTIONAL MISUSE [None]
  - TACHYCARDIA [None]
  - TOXICOLOGIC TEST ABNORMAL [None]
